FAERS Safety Report 24707932 (Version 1)
Quarter: 2024Q4

REPORT INFORMATION
  Report Type: Spontaneous
  Country: US (occurrence: US)
  Receive Date: 20241206
  Receipt Date: 20241206
  Transmission Date: 20250114
  Serious: No
  Sender: Krystal Biotech
  Company Number: US-KRYSTAL BIOTECH, INC.-2024KRYUS00108

PATIENT
  Age: 15 Year
  Sex: Female

DRUGS (1)
  1. VYJUVEK [Suspect]
     Active Substance: BEREMAGENE GEPERPAVEC-SVDT
     Indication: Epidermolysis bullosa
     Route: 061

REACTIONS (3)
  - Swelling face [Unknown]
  - Pyrexia [Unknown]
  - Chills [Unknown]
